FAERS Safety Report 4456017-4 (Version None)
Quarter: 2004Q3

REPORT INFORMATION
  Report Type: 
  Country: None (occurrence: None)
  Receive Date: 20040922
  Receipt Date: 20031219
  Transmission Date: 20050211
  Serious: Yes (Other)
  Sender: FDA-Public Use
  Company Number: PHBS2003JP14411

PATIENT
  Age: 56 Year
  Sex: Male
  Weight: 55 kg

DRUGS (17)
  1. NEORAL [Suspect]
     Indication: RENAL TRANSPLANT
     Dosage: 450 MG/D
     Route: 048
     Dates: start: 20030906, end: 20030908
  2. NEORAL [Suspect]
     Dosage: 175-450 MG/D
     Route: 048
     Dates: start: 20030911
  3. SIMULECT [Suspect]
     Indication: RENAL TRANSPLANT
     Dosage: 20 MG/D
     Route: 042
     Dates: start: 20030909, end: 20030909
  4. SIMULECT [Suspect]
     Dosage: 20 MG/D
     Route: 042
     Dates: start: 20030913, end: 20030913
  5. CELLCEPT [Suspect]
     Indication: RENAL TRANSPLANT
     Dosage: 1-2 G/D
     Route: 048
     Dates: start: 20030906
  6. SANDIMMUNE [Suspect]
     Indication: RENAL TRANSPLANT
     Dosage: 150 MG/D
     Route: 042
     Dates: start: 20030909, end: 20030910
  7. SOLU-MEDROL [Concomitant]
     Indication: RENAL TRANSPLANT
     Dosage: 500 MG/D
     Route: 065
     Dates: start: 20030909, end: 20030909
  8. MEDROL [Concomitant]
     Indication: RENAL TRANSPLANT
     Dosage: 52 MG/D
     Route: 065
     Dates: start: 20030911
  9. DIOVAN [Concomitant]
  10. CALCIUM POLYSTYRENE SULFONATE [Concomitant]
  11. CALCITRIOL [Concomitant]
  12. ALOTEC [Concomitant]
  13. CATAPRES [Concomitant]
  14. CALCIUM CARBONATE [Concomitant]
  15. OMEPRAL [Concomitant]
  16. ALLOPURINOL [Concomitant]
  17. BUFFERIN [Concomitant]

REACTIONS (2)
  - BLOOD AMYLASE INCREASED [None]
  - CYTOMEGALOVIRUS ANTIGEN POSITIVE [None]
